FAERS Safety Report 9407113 (Version 1)
Quarter: 2013Q3

REPORT INFORMATION
  Report Type: Spontaneous
  Country: US (occurrence: US)
  Receive Date: 20130718
  Receipt Date: 20130718
  Transmission Date: 20140515
  Serious: Yes (Other)
  Sender: FDA-Public Use
  Company Number: 2013SP001977

PATIENT
  Age: 38 Year
  Sex: Female
  Weight: 81 kg

DRUGS (6)
  1. LATUDA [Suspect]
     Indication: PSYCHOTIC DISORDER
     Route: 048
  2. LATUDA [Suspect]
     Indication: MAJOR DEPRESSION
     Route: 048
  3. LATUDA [Suspect]
     Indication: OFF LABEL USE
     Route: 048
  4. DEPAKOTE [Concomitant]
     Indication: PRODUCT USED FOR UNKNOWN INDICATION
  5. ANTIFUNGALS [Concomitant]
     Indication: PRODUCT USED FOR UNKNOWN INDICATION
  6. ANTIBIOTICS [Concomitant]
     Indication: PRODUCT USED FOR UNKNOWN INDICATION

REACTIONS (2)
  - Electrocardiogram QT prolonged [Unknown]
  - Off label use [None]
